FAERS Safety Report 4404220-1 (Version None)
Quarter: 2004Q3

REPORT INFORMATION
  Report Type: 
  Country: None (occurrence: None)
  Receive Date: 20040719
  Receipt Date: 20040712
  Transmission Date: 20050211
  Serious: Yes (Life-Threatening, Hospitalization, Disabling)
  Sender: FDA-Public Use
  Company Number: 2004-117869-NL

PATIENT
  Age: 16 Year
  Sex: Male

DRUGS (4)
  1. ROCURONIUM BROMIDE [Suspect]
     Indication: ANAESTHESIA
     Dosage: 20 MG ONCE INTRAVENOUS NOS
     Route: 042
     Dates: start: 20040624, end: 20040624
  2. PROPOFOL [Concomitant]
  3. REMIFENTANIL [Concomitant]
  4. ZOPICLONE [Concomitant]

REACTIONS (5)
  - BRONCHOSPASM [None]
  - CARDIAC ARREST [None]
  - DIARRHOEA [None]
  - HYPOTENSION [None]
  - NERVOUS SYSTEM DISORDER [None]
